FAERS Safety Report 15355285 (Version 1)
Quarter: 2018Q3

REPORT INFORMATION
  Report Type: Spontaneous
  Country: US (occurrence: US)
  Receive Date: 20180830
  Receipt Date: 20180830
  Transmission Date: 20181010
  Serious: Yes (Death, Other)
  Sender: FDA-Public Use
  Company Number: None

PATIENT
  Age: 78 Year
  Sex: Female
  Weight: 87.75 kg

DRUGS (10)
  1. FLONASE [Concomitant]
     Active Substance: FLUTICASONE PROPIONATE
  2. FLUOROURACIL. [Suspect]
     Active Substance: FLUOROURACIL
     Indication: OESOPHAGEAL CARCINOMA
     Route: 042
     Dates: start: 20171115, end: 20180826
  3. LOPRESSOR [Concomitant]
     Active Substance: METOPROLOL TARTRATE
  4. ELIQUIS [Concomitant]
     Active Substance: APIXABAN
  5. ONDANSETRON [Concomitant]
     Active Substance: ONDANSETRON
  6. NEULASTA [Suspect]
     Active Substance: PEGFILGRASTIM
     Indication: NEUTROPENIA
     Route: 042
     Dates: start: 20171115, end: 20180826
  7. DEXAMETHASONE. [Concomitant]
     Active Substance: DEXAMETHASONE
  8. NORVASC [Concomitant]
     Active Substance: AMLODIPINE BESYLATE
  9. EMEND [Concomitant]
     Active Substance: APREPITANT
  10. BENADRYL [Concomitant]
     Active Substance: DIPHENHYDRAMINE HYDROCHLORIDE

REACTIONS (1)
  - Disease progression [None]
